FAERS Safety Report 4789529-4 (Version None)
Quarter: 2005Q4

REPORT INFORMATION
  Report Type: 
  Country: None (occurrence: None)
  Receive Date: 20051005
  Receipt Date: 20051005
  Transmission Date: 20060501
  Serious: Yes (Life-Threatening, Hospitalization)
  Sender: FDA-Public Use
  Company Number: None

PATIENT
  Age: 78 Year
  Sex: Male

DRUGS (8)
  1. ASPIRIN [Suspect]
     Indication: PROPHYLAXIS
     Dosage: 8 MG PO QD
     Route: 048
  2. ASPIRIN [Suspect]
     Indication: PULMONARY EMBOLISM
     Dosage: 8 MG PO QD
     Route: 048
  3. ASPIRIN [Suspect]
     Indication: THROMBOSIS PROPHYLAXIS
     Dosage: 8 MG PO QD
     Route: 048
  4. WARFARIN [Suspect]
     Indication: PROPHYLAXIS
     Dosage: SEE IMAGE
     Route: 048
  5. WARFARIN [Suspect]
     Indication: PULMONARY EMBOLISM
     Dosage: SEE IMAGE
     Route: 048
  6. WARFARIN [Suspect]
     Indication: THROMBOSIS PROPHYLAXIS
     Dosage: SEE IMAGE
     Route: 048
  7. ALLOPURINOL [Concomitant]
  8. PRAVASTATIN [Concomitant]

REACTIONS (1)
  - RECTAL HAEMORRHAGE [None]
